FAERS Safety Report 7271646-0 (Version None)
Quarter: 2011Q1

REPORT INFORMATION
  Report Type: 
  Country: None (occurrence: None)
  Receive Date: 20110125
  Receipt Date: 20110125
  Transmission Date: 20110831
  Serious: Yes (Hospitalization)
  Sender: FDA-Public Use
  Company Number: None

PATIENT
  Age: 78 Year
  Sex: Male
  Weight: 93 kg

DRUGS (2)
  1. PREDNISONE TAB [Suspect]
     Indication: CHRONIC OBSTRUCTIVE PULMONARY DISEASE
     Dosage: MG EVERY DAY PO
     Route: 048
     Dates: start: 20100821, end: 20100831
  2. PREDNISONE TAB [Suspect]
     Indication: ASTHMA
     Dosage: MG EVERY DAY PO
     Route: 048
     Dates: start: 20100821, end: 20100831

REACTIONS (1)
  - DIABETES MELLITUS INADEQUATE CONTROL [None]
